FAERS Safety Report 10977576 (Version 1)
Quarter: 2015Q2

REPORT INFORMATION
  Report Type: Spontaneous
  Country: US (occurrence: None)
  Receive Date: 20150401
  Receipt Date: 20150401
  Transmission Date: 20150821
  Serious: No
  Sender: FDA-Public Use
  Company Number: None

PATIENT
  Age: 69 Year
  Sex: Female
  Weight: 56.7 kg

DRUGS (7)
  1. MULTI VITAMIN [Concomitant]
     Active Substance: VITAMINS
  2. ASPIRIN. [Concomitant]
     Active Substance: ASPIRIN
  3. D3 [Concomitant]
     Active Substance: 25-HYDROXYCHOLECALCIFEROL, 5-TRANS-
  4. ATORVASTATIN CALCIUM. [Suspect]
     Active Substance: ATORVASTATIN CALCIUM
     Indication: BLOOD CHOLESTEROL INCREASED
     Dosage: ONE TABLET
     Route: 048
     Dates: start: 20150101, end: 20150314
  5. FOSAMAX [Concomitant]
     Active Substance: ALENDRONATE SODIUM
  6. CALCIUM [Concomitant]
     Active Substance: CALCIUM
  7. COENZYME Q10 [Suspect]
     Active Substance: UBIDECARENONE

REACTIONS (2)
  - Muscle spasms [None]
  - Musculoskeletal pain [None]

NARRATIVE: CASE EVENT DATE: 20150331
